FAERS Safety Report 13956551 (Version 1)
Quarter: 2017Q3

REPORT INFORMATION
  Report Type: Spontaneous
  Country: US (occurrence: US)
  Receive Date: 20170911
  Receipt Date: 20170911
  Transmission Date: 20171128
  Serious: No
  Sender: FDA-Public Use
  Company Number: US-ASTRAZENECA-2017SE92335

PATIENT
  Sex: Female

DRUGS (1)
  1. NEXIUM 24HR [Suspect]
     Active Substance: ESOMEPRAZOLE MAGNESIUM
     Indication: GASTROOESOPHAGEAL REFLUX DISEASE
     Dosage: 1X/DAY (TAKES ONCE A DAY AN HOUR BEFORE BREAKFAST/TAKES MORE THAN ONE)
     Route: 048

REACTIONS (3)
  - Intentional product misuse [Unknown]
  - Anxiety [Unknown]
  - Intentional product use issue [Unknown]
